FAERS Safety Report 4748648-9 (Version None)
Quarter: 2005Q3

REPORT INFORMATION
  Report Type: 
  Country: None (occurrence: None)
  Receive Date: 20050817
  Receipt Date: 20050801
  Transmission Date: 20060218
  Serious: Yes (Other)
  Sender: FDA-Public Use
  Company Number: 2005111577

PATIENT
  Sex: Male

DRUGS (1)
  1. NEURONTIN [Suspect]
     Indication: ILL-DEFINED DISORDER

REACTIONS (13)
  - AGGRESSION [None]
  - AMNESIA [None]
  - DEPRESSION [None]
  - LEGAL PROBLEM [None]
  - MENTAL STATUS CHANGES [None]
  - MOOD ALTERED [None]
  - PARANOIA [None]
  - SCAR [None]
  - SKIN LACERATION [None]
  - SUICIDE ATTEMPT [None]
  - SUSPICIOUSNESS [None]
  - THINKING ABNORMAL [None]
  - TRAUMATIC HAEMORRHAGE [None]
